FAERS Safety Report 10245708 (Version 1)
Quarter: 2014Q2

REPORT INFORMATION
  Report Type: Spontaneous
  Country: CA (occurrence: CA)
  Receive Date: 20140619
  Receipt Date: 20140619
  Transmission Date: 20141212
  Serious: Yes (Other)
  Sender: FDA-Public Use
  Company Number: CA-AMGEN-CANSP2014044933

PATIENT
  Age: 83 Year
  Sex: Female

DRUGS (1)
  1. ENBREL [Suspect]
     Indication: RHEUMATOID ARTHRITIS
     Dosage: 50 MG, UNK
     Route: 065
     Dates: start: 20121205

REACTIONS (5)
  - Carpal tunnel syndrome [Not Recovered/Not Resolved]
  - Procedural site reaction [Not Recovered/Not Resolved]
  - Incision site rash [Not Recovered/Not Resolved]
  - Herpes zoster [Not Recovered/Not Resolved]
  - Incision site infection [Not Recovered/Not Resolved]
